FAERS Safety Report 7050142-X (Version None)
Quarter: 2010Q4

REPORT INFORMATION
  Report Type: 
  Country: None (occurrence: None)
  Receive Date: 20101018
  Receipt Date: 20101006
  Transmission Date: 20110411
  Serious: Yes (Other)
  Sender: FDA-Public Use
  Company Number: FR-PFIZER INC-2010127136

PATIENT
  Age: 18 Year
  Sex: Male

DRUGS (2)
  1. RELPAX [Suspect]
     Dosage: UNK
     Dates: start: 20100930, end: 20100930
  2. VENLAFAXINE 'BIOGARAN' [Suspect]
     Dosage: 75 MG, UNK

REACTIONS (1)
  - AGGRESSION [None]
